FAERS Safety Report 11159630 (Version 1)
Quarter: 2015Q2

REPORT INFORMATION
  Report Type: Report from Study
  Country: US (occurrence: US)
  Receive Date: 20150603
  Receipt Date: 20150603
  Transmission Date: 20150821
  Serious: No
  Sender: FDA-Public Use
  Company Number: US-ABBVIE-14P-163-1295738-00

PATIENT
  Age: 85 Year
  Sex: Female
  Weight: 44.04 kg

DRUGS (4)
  1. MARINOL [Suspect]
     Active Substance: DRONABINOL
     Indication: DECREASED APPETITE
     Route: 048
     Dates: start: 20141014
  2. HYDROCODONE [Concomitant]
     Active Substance: HYDROCODONE
     Indication: PRODUCT USED FOR UNKNOWN INDICATION
  3. DOMPERIDONE [Concomitant]
     Active Substance: DOMPERIDONE
     Indication: PRODUCT USED FOR UNKNOWN INDICATION
  4. ASA [Concomitant]
     Active Substance: ASPIRIN
     Indication: PRODUCT USED FOR UNKNOWN INDICATION

REACTIONS (3)
  - Feeling abnormal [Recovering/Resolving]
  - Feeling of relaxation [Recovering/Resolving]
  - Euphoric mood [Recovering/Resolving]

NARRATIVE: CASE EVENT DATE: 20141014
